FAERS Safety Report 12060927 (Version 1)
Quarter: 2016Q1

REPORT INFORMATION
  Report Type: Spontaneous
  Country: US (occurrence: US)
  Receive Date: 20160210
  Receipt Date: 20160210
  Transmission Date: 20160526
  Serious: Yes (Hospitalization)
  Sender: FDA-Public Use
  Company Number: US-FRESENIUS MEDICAL CARE NORTH AMERICA-1047603

PATIENT
  Age: 42 Year
  Sex: Female
  Weight: 103.64 kg

DRUGS (2)
  1. COUMADIN [Concomitant]
     Active Substance: WARFARIN SODIUM
  2. DELFLEX [Suspect]
     Active Substance: CALCIUM CHLORIDE\DEXTROSE\MAGNESIUM CHLORIDE\SODIUM CHLORIDE\SODIUM LACTATE
     Indication: END STAGE RENAL DISEASE
     Route: 033
     Dates: start: 20140716

REACTIONS (12)
  - Rash [None]
  - Calciphylaxis [Recovering/Resolving]
  - Sepsis [None]
  - Systemic inflammatory response syndrome [None]
  - Deep vein thrombosis [None]
  - International normalised ratio increased [None]
  - Necrosis [None]
  - Wound haemorrhage [None]
  - Anaemia of chronic disease [None]
  - Cellulitis [None]
  - Anticoagulation drug level above therapeutic [None]
  - Parathyroidectomy [None]

NARRATIVE: CASE EVENT DATE: 20160118
